FAERS Safety Report 8478874-7 (Version None)
Quarter: 2012Q2

REPORT INFORMATION
  Report Type: 
  Country: None (occurrence: None)
  Receive Date: 20120629
  Receipt Date: 20120625
  Transmission Date: 20120825
  Serious: Yes (Life-Threatening, Congenital Anomaly, Other)
  Sender: FDA-Public Use
  Company Number: US-PFIZER INC-2012026217

PATIENT
  Sex: Male
  Weight: 3.537 kg

DRUGS (1)
  1. ZOLOFT [Suspect]
     Dosage: UNK
     Route: 064

REACTIONS (8)
  - CONGENITAL ANOMALY [None]
  - TALIPES [None]
  - LIMB MALFORMATION [None]
  - HIP DYSPLASIA [None]
  - JAUNDICE NEONATAL [None]
  - HEART DISEASE CONGENITAL [None]
  - LIMB DEFORMITY [None]
  - MATERNAL EXPOSURE TIMING UNSPECIFIED [None]
